FAERS Safety Report 13551699 (Version 1)
Quarter: 2017Q2

REPORT INFORMATION
  Report Type: Report from Study
  Country: US (occurrence: US)
  Receive Date: 20170516
  Receipt Date: 20170516
  Transmission Date: 20170830
  Serious: Yes (Other)
  Sender: FDA-Public Use
  Company Number: US-BAUSCH-BL-2017-014967

PATIENT
  Age: 50 Year
  Sex: Female

DRUGS (3)
  1. METHYLNALTREXONE [Suspect]
     Active Substance: METHYLNALTREXONE
     Indication: PAIN
     Route: 058
  2. METHYLNALTREXONE [Suspect]
     Active Substance: METHYLNALTREXONE
     Indication: CONSTIPATION
  3. MORPHINE [Concomitant]
     Active Substance: MORPHINE
     Indication: PAIN
     Dosage: AN AVERAGE DAILY DOSE GREATER THAN 50-MG EQUIVALENTS FOR AT LEAST 2 WEEKS
     Route: 048

REACTIONS (1)
  - Extrasystoles [Recovered/Resolved]
